FAERS Safety Report 6157049-0 (Version None)
Quarter: 2009Q2

REPORT INFORMATION
  Report Type: 
  Country: None (occurrence: None)
  Receive Date: 20090413
  Receipt Date: 20090402
  Transmission Date: 20091009
  Serious: Yes (Death)
  Sender: FDA-Public Use
  Company Number: GXKR2009GB04256

PATIENT
  Sex: 0

DRUGS (5)
  1. AMOXICILLIN [Suspect]
  2. CEFUROXIME [Suspect]
  3. CIPROFLOXACIN [Concomitant]
  4. LACTULOSE [Suspect]
  5. SENNA (SENNA, SENNA ALEXANDRINA) [Suspect]

REACTIONS (2)
  - CLOSTRIDIAL INFECTION [None]
  - DIARRHOEA [None]
